FAERS Safety Report 8700305 (Version 2)
Quarter: 2012Q4

REPORT INFORMATION
  Report Type: 
  Country: US (occurrence: US)
  Receive Date: 20120802
  Receipt Date: 20121204
  Transmission Date: 20130627
  Serious: No
  Sender: FDA-Public Use
  Company Number: US-AMGEN-USASP2012042335

PATIENT
  Age: 58 Year
  Sex: Female
  Weight: 106.12 kg

DRUGS (5)
  1. ENBREL [Suspect]
     Indication: RHEUMATOID ARTHRITIS
     Dosage: 50 mg, qwk
     Route: 058
     Dates: start: 20120529
  2. METHOTREXATE [Concomitant]
     Indication: RHEUMATOID ARTHRITIS
     Dosage: 2.5 Pills once a week
     Route: 048
     Dates: start: 20120316
  3. FOLIC ACID [Concomitant]
     Indication: RHEUMATOID ARTHRITIS
     Dosage: 1 mg, qd
     Route: 048
     Dates: start: 20120316
  4. CALCIUM [Concomitant]
     Indication: MENOPAUSAL SYMPTOMS
     Dosage: 500 mg, qd
     Route: 048
  5. VITAMIN D NOS [Concomitant]
     Indication: MENOPAUSAL SYMPTOMS
     Dosage: 50000 Unit daily

REACTIONS (1)
  - Injection site erythema [Recovered/Resolved]
